FAERS Safety Report 8892310 (Version 1)
Quarter: 2012Q4

REPORT INFORMATION
  Report Type: 
  Country: US (occurrence: US)
  Receive Date: 20121107
  Receipt Date: 20121107
  Transmission Date: 20130627
  Serious: No
  Sender: FDA-Public Use
  Company Number: US-AMGEN-USASP2011061006

PATIENT
  Age: 44 Year
  Sex: Female

DRUGS (9)
  1. ENBREL [Suspect]
     Indication: PSORIASIS
     Dosage: 50 mg, 2 times/wk
  2. DIFLUCAN [Concomitant]
  3. DIPROLENE [Concomitant]
  4. SIMVASTATIN [Concomitant]
  5. BETAMETHASONE [Concomitant]
  6. METOPROLOL [Concomitant]
  7. ASPIRIN [Concomitant]
  8. METROGEL VAGINAL [Concomitant]
  9. VITAMIN D /00107901/ [Concomitant]

REACTIONS (1)
  - Psoriasis [Not Recovered/Not Resolved]
